FAERS Safety Report 6171536-0 (Version None)
Quarter: 2009Q2

REPORT INFORMATION
  Report Type: 
  Country: None (occurrence: None)
  Receive Date: 20090429
  Receipt Date: 20090416
  Transmission Date: 20091009
  Serious: Yes (Other)
  Sender: FDA-Public Use
  Company Number: US-PFIZER INC-2008047766

PATIENT
  Sex: Male
  Weight: 64.853 kg

DRUGS (6)
  1. CHANTIX [Suspect]
     Indication: SMOKING CESSATION THERAPY
     Dosage: 0.5 MG, 1X/DAY
     Dates: start: 20080426, end: 20080429
  2. POTASSIUM CHLORIDE [Concomitant]
  3. FOLIC ACID [Concomitant]
  4. DOXAZOSIN MESYLATE [Concomitant]
  5. HYDROCHLOROTHIAZIDE [Concomitant]
  6. ALL OTHER THERAPEUTIC PRODUCTS [Concomitant]
     Dosage: UNK

REACTIONS (2)
  - HEART RATE DECREASED [None]
  - HEART RATE IRREGULAR [None]
